FAERS Safety Report 24352281 (Version 1)
Quarter: 2024Q3

REPORT INFORMATION
  Report Type: Spontaneous
  Country: US (occurrence: US)
  Receive Date: 20240923
  Receipt Date: 20240923
  Transmission Date: 20241016
  Serious: No
  Sender: PERRIGO
  Company Number: US-PERRIGO-24US007460

PATIENT
  Age: 81 Year
  Sex: Female
  Weight: 59.864 kg

DRUGS (9)
  1. NASONEX [Suspect]
     Active Substance: MOMETASONE FUROATE
     Indication: Cough
     Dosage: 200 MCG, QD
     Route: 045
     Dates: start: 20240601, end: 202407
  2. NASONEX [Suspect]
     Active Substance: MOMETASONE FUROATE
     Indication: Perennial allergy
     Dosage: LITTLE SPRAYS IN EACH NOSTRIL, BID
     Route: 045
     Dates: start: 2024, end: 20240713
  3. NASONEX [Suspect]
     Active Substance: MOMETASONE FUROATE
     Dosage: 200 MCG, BID
     Route: 045
     Dates: start: 202407
  4. NASONEX [Suspect]
     Active Substance: MOMETASONE FUROATE
     Dosage: 2 LITTLE SPRAYS IN EACH NOSTRIL, UNK
     Route: 045
     Dates: start: 20240806, end: 20240806
  5. AMLODIPINE [Concomitant]
     Active Substance: AMLODIPINE BESYLATE
     Indication: Hypertension
     Dosage: 2.5MG, UNK
     Route: 065
  6. ASPIRIN [Concomitant]
     Active Substance: ASPIRIN
     Indication: Prophylaxis
     Dosage: UNK
     Route: 065
  7. ZYRTEC [Concomitant]
     Active Substance: CETIRIZINE HYDROCHLORIDE
     Indication: Perennial allergy
     Dosage: UNK
     Route: 065
  8. QVAR [Concomitant]
     Active Substance: BECLOMETHASONE DIPROPIONATE
     Indication: Perennial allergy
     Dosage: TWO PUFFS, BID
     Route: 065
     Dates: start: 202402
  9. ROSUVASTATIN [Concomitant]
     Active Substance: ROSUVASTATIN\ROSUVASTATIN CALCIUM
     Indication: Blood cholesterol increased
     Dosage: 40 MG, UNK
     Route: 065

REACTIONS (4)
  - Drug ineffective for unapproved indication [Unknown]
  - Drug effective for unapproved indication [Unknown]
  - Inappropriate schedule of product administration [Unknown]
  - Underdose [Unknown]

NARRATIVE: CASE EVENT DATE: 20240101
